FAERS Safety Report 7125781-8 (Version None)
Quarter: 2010Q4

REPORT INFORMATION
  Report Type: 
  Country: None (occurrence: None)
  Receive Date: 20101129
  Receipt Date: 20101124
  Transmission Date: 20110411
  Serious: Yes (Other)
  Sender: FDA-Public Use
  Company Number: B0685861A

PATIENT
  Sex: Male

DRUGS (13)
  1. AUGMENTIN [Suspect]
     Route: 048
     Dates: start: 20100819, end: 20100825
  2. KETEK [Suspect]
     Route: 048
     Dates: start: 20100825, end: 20100902
  3. CORTANCYL [Concomitant]
     Route: 065
  4. NOVATREX [Concomitant]
     Route: 065
  5. SPECIAFOLDINE [Concomitant]
     Route: 065
  6. FOSAMAX [Concomitant]
     Route: 065
  7. CACIT D3 [Concomitant]
     Route: 065
  8. MOPRAL [Concomitant]
     Route: 065
  9. LEVOTHYROXINE SODIUM [Concomitant]
     Route: 065
  10. ATARAX [Concomitant]
     Route: 065
  11. DOLIPRANE [Concomitant]
     Route: 065
  12. SINGULAIR [Concomitant]
     Route: 065
  13. HYDROCORTISONE [Concomitant]
     Route: 065

REACTIONS (9)
  - ABDOMINAL PAIN UPPER [None]
  - CHROMATURIA [None]
  - FAECES DISCOLOURED [None]
  - HEPATOCELLULAR INJURY [None]
  - HEPATOMEGALY [None]
  - JAUNDICE [None]
  - NAUSEA [None]
  - PRURITUS GENERALISED [None]
  - PYREXIA [None]
